FAERS Safety Report 10329032 (Version 1)
Quarter: 2014Q3

REPORT INFORMATION
  Report Type: Spontaneous
  Country: US (occurrence: US)
  Receive Date: 20140721
  Receipt Date: 20140721
  Transmission Date: 20150326
  Serious: Yes (Other)
  Sender: FDA-Public Use
  Company Number: PHEH2014US014307

PATIENT
  Sex: Female

DRUGS (10)
  1. RITALIN [Suspect]
     Active Substance: METHYLPHENIDATE HYDROCHLORIDE
     Dosage: UNK UKN, UNK
  2. KLOR-CON [Concomitant]
     Active Substance: POTASSIUM CHLORIDE
     Dosage: UNK UKN, UNK
  3. DIAZEPAM. [Concomitant]
     Active Substance: DIAZEPAM
     Dosage: UNK UKN, UNK
  4. AMPYRA [Suspect]
     Active Substance: DALFAMPRIDINE
     Indication: MULTIPLE SCLEROSIS
     Dosage: 10 MG, Q12H
     Route: 048
     Dates: start: 201211
  5. PERCOCET [Suspect]
     Active Substance: ACETAMINOPHEN\OXYCODONE HYDROCHLORIDE
     Dosage: UNK UKN, UNK
  6. CARVEDILOL. [Concomitant]
     Active Substance: CARVEDILOL
     Dosage: UNK UKN, UNK
  7. ROBAXIN [Concomitant]
     Active Substance: METHOCARBAMOL
     Dosage: UNK UKN, UNK
  8. SEROQUEL [Suspect]
     Active Substance: QUETIAPINE FUMARATE
     Dosage: UNK UKN, UNK
  9. REBIF [Suspect]
     Active Substance: INTERFERON BETA-1A
     Dosage: UNK UKN, UNK
  10. AMANTADINE [Concomitant]
     Active Substance: AMANTADINE
     Dosage: UNK UKN, UNK

REACTIONS (1)
  - Drug intolerance [Unknown]
